FAERS Safety Report 7533221-X (Version None)
Quarter: 2011Q2

REPORT INFORMATION
  Report Type: 
  Country: None (occurrence: None)
  Receive Date: 20110608
  Receipt Date: 20021017
  Transmission Date: 20111010
  Serious: Yes (Death)
  Sender: FDA-Public Use
  Company Number: PHFR2002GB02876

PATIENT
  Sex: Male

DRUGS (6)
  1. METFORMIN HCL [Suspect]
     Indication: TYPE 2 DIABETES MELLITUS
     Route: 065
  2. STARLIX [Concomitant]
     Dosage: UNK, UNK
     Route: 065
  3. ASPIRIN [Concomitant]
     Route: 065
  4. STARLIX [Suspect]
     Indication: TYPE 2 DIABETES MELLITUS
     Dosage: 60 MG, TID
     Route: 048
     Dates: start: 20020514, end: 20020526
  5. LIPOSTAT [Concomitant]
     Route: 065
  6. LISINOPRIL [Concomitant]
     Route: 065

REACTIONS (2)
  - MYOCARDIAL INFARCTION [None]
  - CARDIAC ARREST [None]
